FAERS Safety Report 14842895 (Version 1)
Quarter: 2018Q2

REPORT INFORMATION
  Report Type: Spontaneous
  Country: RU (occurrence: RU)
  Receive Date: 20180503
  Receipt Date: 20180503
  Transmission Date: 20180711
  Serious: Yes (Hospitalization)
  Sender: FDA-Public Use
  Company Number: RU-ASTRAZENECA-2017SF05960

PATIENT
  Age: 71 Year
  Sex: Female
  Weight: 82 kg

DRUGS (8)
  1. BRILINTA [Suspect]
     Active Substance: TICAGRELOR
     Indication: MYOCARDIAL INFARCTION
     Route: 048
     Dates: start: 201706, end: 201804
  2. THROMBO ASS [Concomitant]
     Active Substance: ASPIRIN
  3. AMLODIPINE [Concomitant]
     Active Substance: AMLODIPINE BESYLATE
  4. LISINOPRIL. [Concomitant]
     Active Substance: LISINOPRIL
  5. CONCOR [Concomitant]
     Active Substance: BISOPROLOL FUMARATE
  6. VEROSPIRON [Concomitant]
     Active Substance: SPIRONOLACTONE
  7. ENALAPRIL [Concomitant]
     Active Substance: ENALAPRIL
  8. SIMVASTATIN. [Concomitant]
     Active Substance: SIMVASTATIN

REACTIONS (8)
  - Abscess [Recovered/Resolved]
  - Ocular hyperaemia [Unknown]
  - Head injury [Recovered/Resolved]
  - Weight increased [Unknown]
  - Visual impairment [Recovered/Resolved]
  - Cough [Recovered/Resolved]
  - Abdominal pain [Not Recovered/Not Resolved]
  - Contusion [Unknown]

NARRATIVE: CASE EVENT DATE: 201708
